FAERS Safety Report 22060743 (Version 1)
Quarter: 2023Q1

REPORT INFORMATION
  Report Type: Spontaneous
  Country: US (occurrence: None)
  Receive Date: 20230303
  Receipt Date: 20230303
  Transmission Date: 20230417
  Serious: No
  Sender: FDA-Public Use
  Company Number: None

PATIENT
  Age: 80 Year
  Sex: Female
  Weight: 65.32 kg

DRUGS (12)
  1. LENALIDOMIDE [Suspect]
     Active Substance: LENALIDOMIDE
     Indication: Plasma cell myeloma
     Dosage: FREQUENCY : DAILY;?
     Route: 048
     Dates: start: 202207
  2. ACYCLOVIR [Concomitant]
  3. DEXAMETHASONE [Concomitant]
  4. ELIQUIS [Concomitant]
  5. FLECAINDINE [Concomitant]
  6. KLOR-CON [Concomitant]
  7. METOPROLOL [Concomitant]
  8. MULTIVITAMIN [Concomitant]
  9. NINIARO [Concomitant]
  10. PRAVASTATIN [Concomitant]
  11. SYNTHROID [Concomitant]
  12. VITAMIN D3 [Concomitant]

REACTIONS (1)
  - Hospitalisation [None]

NARRATIVE: CASE EVENT DATE: 20230206
